FAERS Safety Report 5353111-0 (Version None)
Quarter: 2007Q2

REPORT INFORMATION
  Report Type: 
  Country: None (occurrence: None)
  Receive Date: 20070611
  Receipt Date: 20070530
  Transmission Date: 20071010
  Serious: Yes (Other)
  Sender: FDA-Public Use
  Company Number: US-PFIZER INC-2007046071

PATIENT
  Sex: Female
  Weight: 90.7 kg

DRUGS (17)
  1. CHANTIX [Suspect]
     Indication: SMOKING CESSATION THERAPY
     Route: 048
  2. EVISTA [Concomitant]
  3. LEVOTHROID [Concomitant]
  4. ZYRTEC [Concomitant]
  5. GALENIC /DOCUSATE/SENNA/ [Concomitant]
  6. TRIOBE [Concomitant]
  7. KLOR-CON [Concomitant]
  8. PROPRANOLOL [Concomitant]
  9. PROTONIX [Concomitant]
  10. HYDROCHLOROTHIAZIDE [Concomitant]
  11. THEOPHYLLINE [Concomitant]
  12. ETODOLAC [Concomitant]
  13. TIZANIDINE HCL [Concomitant]
  14. EFFEXOR [Concomitant]
  15. MIRTAZAPINE [Concomitant]
  16. ZOLPIDEM [Concomitant]
  17. KLONOPIN [Concomitant]

REACTIONS (8)
  - ABDOMINAL DISTENSION [None]
  - ABNORMAL DREAMS [None]
  - DYSPNOEA [None]
  - FATIGUE [None]
  - INSOMNIA [None]
  - MEDICATION ERROR [None]
  - NAUSEA [None]
  - NEURALGIA [None]
